FAERS Safety Report 5388505-0 (Version None)
Quarter: 2007Q3

REPORT INFORMATION
  Report Type: 
  Country: None (occurrence: None)
  Receive Date: 20070711
  Receipt Date: 20070627
  Transmission Date: 20080115
  Serious: Yes (Other)
  Sender: FDA-Public Use
  Company Number: 2006JP003455

PATIENT
  Age: 65 Year
  Sex: Female

DRUGS (10)
  1. TACROLIMUS [Suspect]
     Indication: RHEUMATOID ARTHRITIS
     Dosage: 1.5 MG, UID/QD, ORAL
     Route: 048
     Dates: start: 20060705, end: 20060807
  2. PREDNISOLONE [Suspect]
     Indication: RHEUMATOID ARTHRITIS
     Dosage: SEE IMAGE
     Route: 048
     Dates: start: 20060104
  3. OPALMON(LIMAPROST) TABLET [Suspect]
     Indication: LUMBAR SPINAL STENOSIS
     Dosage: 5 UG, TID, ORAL
     Route: 048
     Dates: start: 20060608, end: 20060807
  4. VOLTAREN (DICLOFENAC) CAPSULE [Concomitant]
  5. AZULFIDINE EN TABLET [Concomitant]
  6. ALTAT (ROXATIDINE ACETATE HYDROCHLORIDE) CAPSULE [Concomitant]
  7. BERIZYM (ENZYMES NOS) GRANULE [Concomitant]
  8. MUCOSTA (REBAMIPIDE) TABLET [Concomitant]
  9. INDACIN (INDOMETACIN) SUPPOSITORY [Concomitant]
  10. VOLTAREN (DICLOFENAC) GEL [Concomitant]

REACTIONS (8)
  - ASPARTATE AMINOTRANSFERASE INCREASED [None]
  - BRONCHIECTASIS [None]
  - BRONCHITIS [None]
  - C-REACTIVE PROTEIN INCREASED [None]
  - HAEMOPTYSIS [None]
  - HAEMORRHAGIC DIATHESIS [None]
  - INFECTION [None]
  - INFECTION IN AN IMMUNOCOMPROMISED HOST [None]
